FAERS Safety Report 7383340-6 (Version None)
Quarter: 2011Q1

REPORT INFORMATION
  Report Type: 
  Country: None (occurrence: None)
  Receive Date: 20110325
  Receipt Date: 20110325
  Transmission Date: 20110831
  Serious: Yes (Hospitalization)
  Sender: FDA-Public Use
  Company Number: None

PATIENT
  Age: 76 Year
  Sex: Female
  Weight: 112 kg

DRUGS (9)
  1. SIMVASTATIN [Concomitant]
  2. ATENOLOL [Concomitant]
  3. ASPIRIN [Concomitant]
  4. COUMADIN [Suspect]
     Indication: ATRIAL FIBRILLATION
     Dosage: DAILY PO CHRONIC
     Route: 048
  5. FUROSEMIDE [Concomitant]
  6. VIT D [Concomitant]
  7. KEPPRA [Concomitant]
  8. GLIPIZIDE [Concomitant]
  9. LISINOPRIL [Concomitant]

REACTIONS (5)
  - UTERINE HAEMORRHAGE [None]
  - HAEMATOCRIT DECREASED [None]
  - HAEMORRHAGIC ANAEMIA [None]
  - INTERNATIONAL NORMALISED RATIO DECREASED [None]
  - INTERNATIONAL NORMALISED RATIO INCREASED [None]
